FAERS Safety Report 21060203 (Version 1)
Quarter: 2022Q3

REPORT INFORMATION
  Report Type: Spontaneous
  Country: US (occurrence: US)
  Receive Date: 20220708
  Receipt Date: 20220708
  Transmission Date: 20221026
  Serious: No
  Sender: FDA-Public Use
  Company Number: US-SA-SAC20220701001249

PATIENT
  Sex: Female

DRUGS (2)
  1. ALLEGRA [Suspect]
     Active Substance: FEXOFENADINE HYDROCHLORIDE
     Dosage: UNK
  2. FEXOFENADINE\MONTELUKAST [Concomitant]
     Active Substance: FEXOFENADINE\MONTELUKAST
     Dosage: UNK

REACTIONS (1)
  - Headache [Unknown]
